FAERS Safety Report 7343913-3 (Version None)
Quarter: 2011Q1

REPORT INFORMATION
  Report Type: 
  Country: None (occurrence: None)
  Receive Date: 20110310
  Receipt Date: 20100125
  Transmission Date: 20110831
  Serious: No
  Sender: FDA-Public Use
  Company Number: A0841576A

PATIENT
  Age: 72 Year
  Sex: Female

DRUGS (1)
  1. NICORETTE [Suspect]
     Dates: start: 20100113

REACTIONS (14)
  - GINGIVAL ULCERATION [None]
  - FOREIGN BODY [None]
  - SKIN IRRITATION [None]
  - SWELLING FACE [None]
  - TONGUE ULCERATION [None]
  - DYSPHAGIA [None]
  - MOUTH ULCERATION [None]
  - MASTICATION DISORDER [None]
  - GLOSSITIS [None]
  - HYPERSENSITIVITY [None]
  - OROPHARYNGEAL DISCOMFORT [None]
  - SWOLLEN TONGUE [None]
  - GINGIVAL SWELLING [None]
  - GINGIVAL DISORDER [None]
